FAERS Safety Report 9398998 (Version 2)
Quarter: 2013Q3

REPORT INFORMATION
  Report Type: Spontaneous
  Country: US (occurrence: US)
  Receive Date: 20130714
  Receipt Date: 20130731
  Transmission Date: 20140515
  Serious: No
  Sender: FDA-Public Use
  Company Number: US-009507513-1307USA006490

PATIENT
  Age: 73 Year
  Sex: Female

DRUGS (2)
  1. MIRALAX [Suspect]
     Indication: CONSTIPATION
     Dosage: 17 G, QD
     Route: 048
     Dates: start: 20130617, end: 20130701
  2. MIRALAX [Suspect]
     Indication: MEDICAL OBSERVATION

REACTIONS (4)
  - Flatulence [Recovered/Resolved]
  - Abnormal faeces [Recovered/Resolved]
  - Faeces discoloured [Recovered/Resolved]
  - Musculoskeletal pain [Recovered/Resolved]
